FAERS Safety Report 18490463 (Version 1)
Quarter: 2020Q4

REPORT INFORMATION
  Report Type: Spontaneous
  Country: US (occurrence: US)
  Receive Date: 20201111
  Receipt Date: 20201111
  Transmission Date: 20210114
  Serious: Yes (Other)
  Sender: FDA-Public Use
  Company Number: None

PATIENT
  Age: 52 Year
  Sex: Male
  Weight: 67.4 kg

DRUGS (1)
  1. BUPRENORPHINE-NALOXONE SUBLINGUAL TABLETS [Suspect]
     Active Substance: BUPRENORPHINE HYDROCHLORIDE\NALOXONE HYDROCHLORIDE
     Dates: start: 20200713, end: 20201102

REACTIONS (2)
  - Withdrawal syndrome [None]
  - Therapeutic product effect decreased [None]

NARRATIVE: CASE EVENT DATE: 20201102
